FAERS Safety Report 6412195-9 (Version None)
Quarter: 2009Q4

REPORT INFORMATION
  Report Type: 
  Country: None (occurrence: None)
  Receive Date: 20091023
  Receipt Date: 20091020
  Transmission Date: 20100525
  Serious: Yes (Hospitalization)
  Sender: FDA-Public Use
  Company Number: A0813027A

PATIENT
  Sex: Female

DRUGS (2)
  1. CEFTIN [Suspect]
     Indication: UPPER RESPIRATORY TRACT INFECTION
     Dates: start: 19960101
  2. BIAXIN [Suspect]
     Indication: UPPER RESPIRATORY TRACT INFECTION
     Dates: start: 19960101

REACTIONS (2)
  - HYPERSENSITIVITY [None]
  - SEPSIS [None]
